FAERS Safety Report 8340491-7 (Version None)
Quarter: 2012Q2

REPORT INFORMATION
  Report Type: 
  Country: None (occurrence: None)
  Receive Date: 20120507
  Receipt Date: 20090810
  Transmission Date: 20120825
  Serious: Yes (Hospitalization)
  Sender: FDA-Public Use
  Company Number: US-TEVA-2009008799

PATIENT
  Sex: Male
  Weight: 85.806 kg

DRUGS (10)
  1. ASPIRIN [Concomitant]
     Indication: CORONARY ARTERY DISEASE
  2. ALLOPURINOL [Concomitant]
     Dates: end: 20090717
  3. ACYCLOVIR [Concomitant]
  4. PROSCAR [Concomitant]
     Indication: BENIGN PROSTATIC HYPERPLASIA
  5. UROXATRAL [Concomitant]
     Indication: BENIGN PROSTATIC HYPERPLASIA
  6. ZOCOR [Concomitant]
     Indication: HYPERLIPIDAEMIA
  7. TREANDA [Suspect]
     Indication: CHRONIC LYMPHOCYTIC LEUKAEMIA
     Dosage: 1ST DOSE AT 75%
     Route: 042
     Dates: start: 20090519, end: 20090520
  8. ATENOLOL [Concomitant]
     Indication: HYPERTENSION
  9. ATOVAQUONE [Concomitant]
  10. TREANDA [Suspect]
     Dosage: 2ND DOSE AT 100%
     Route: 042
     Dates: start: 20090609, end: 20090610

REACTIONS (1)
  - FEBRILE NEUTROPENIA [None]
